FAERS Safety Report 8343395-9 (Version None)
Quarter: 2012Q2

REPORT INFORMATION
  Report Type: 
  Country: None (occurrence: None)
  Receive Date: 20120508
  Receipt Date: 20120430
  Transmission Date: 20120825
  Serious: Yes (Other)
  Sender: FDA-Public Use
  Company Number: US-BAYER-2011-123883

PATIENT
  Age: 19 Year
  Sex: Female
  Weight: 47.619 kg

DRUGS (3)
  1. DROSPIRENONE AND ETHINYL ESTRADIOL [Suspect]
     Indication: ACNE
  2. YAZ [Suspect]
     Dosage: UNK
     Dates: start: 20050101, end: 20101201
  3. DROSPIRENONE AND ETHINYL ESTRADIOL [Suspect]
     Indication: CONTRACEPTION
     Dosage: UNK
     Dates: start: 20040101, end: 20101101

REACTIONS (11)
  - ARRHYTHMIA [None]
  - GALLBLADDER DISORDER [None]
  - CHEST PAIN [None]
  - PANCREATIC DISORDER [None]
  - PSYCHOLOGICAL TRAUMA [None]
  - GASTROINTESTINAL DISORDER [None]
  - ANXIETY [None]
  - CHOLECYSTITIS [None]
  - MUSCULOSKELETAL PAIN [None]
  - EMOTIONAL DISTRESS [None]
  - FEAR [None]
